FAERS Safety Report 8600731-3 (Version None)
Quarter: 2012Q3

REPORT INFORMATION
  Report Type: 
  Country: None (occurrence: None)
  Receive Date: 20120817
  Receipt Date: 20120809
  Transmission Date: 20120928
  Serious: Yes (Hospitalization)
  Sender: FDA-Public Use
  Company Number: US-BAYER-2012-076319

PATIENT
  Age: 43 Year
  Sex: Female
  Weight: 52.154 kg

DRUGS (5)
  1. INDOMETHACIN [Concomitant]
     Indication: MIGRAINE
     Dosage: 25 MG, TID
     Route: 048
     Dates: start: 20091111
  2. YAZ [Suspect]
     Dosage: UNK
     Dates: start: 20071120, end: 20091111
  3. RELPAX [Concomitant]
     Indication: MIGRAINE
     Dosage: 40 MG, QD
     Dates: start: 20090819
  4. AMOXICILLIN [Concomitant]
     Dosage: 250 MG, UNK
     Dates: start: 20090923
  5. TAZORAC [Concomitant]
     Dosage: 0.05% EX CREA APPLY TO FACE AS NEEDED
     Dates: start: 20091012

REACTIONS (12)
  - GENERAL PHYSICAL HEALTH DETERIORATION [None]
  - ABDOMINAL PAIN LOWER [None]
  - PAIN [None]
  - EMOTIONAL DISTRESS [None]
  - ABDOMINAL PAIN [None]
  - VOMITING [None]
  - ANXIETY [None]
  - THROMBOSIS [None]
  - INJURY [None]
  - COLITIS ISCHAEMIC [None]
  - HAEMATOCHEZIA [None]
  - DIARRHOEA [None]
